FAERS Safety Report 11137008 (Version 2)
Quarter: 2016Q2

REPORT INFORMATION
  Report Type: Report from Study
  Country: US (occurrence: US)
  Receive Date: 20150526
  Receipt Date: 20160516
  Transmission Date: 20160815
  Serious: No
  Sender: FDA-Public Use
  Company Number: US-MALLINCKRODT-T201501577

PATIENT
  Age: 55 Year
  Sex: Female

DRUGS (21)
  1. REPOSITORY CORTICOTROPIN INJECTION [Suspect]
     Active Substance: CORTICOTROPIN
     Indication: NEPHROTIC SYNDROME
     Dosage: 80 UNITS QOD
     Route: 058
  2. VITAMIN D [Concomitant]
     Active Substance: CHOLECALCIFEROL
     Dosage: 1000 UNIT CAPSULE
     Dates: start: 20150122
  3. CIPROFLOXACIN. [Concomitant]
     Active Substance: CIPROFLOXACIN
     Dosage: 400 MG INJ
     Dates: start: 20150122
  4. ACYCLOVIR. [Concomitant]
     Active Substance: ACYCLOVIR
     Dosage: 200 MG CAPSULE
     Dates: start: 20150122
  5. TEMAZEPAM. [Concomitant]
     Active Substance: TEMAZEPAM
     Dosage: 15 MG CAPSULE
  6. NOVOLOG [Concomitant]
     Active Substance: INSULIN ASPART
     Dosage: INJ 100 ML
     Dates: start: 20150122
  7. OMEPRAZOLE. [Concomitant]
     Active Substance: OMEPRAZOLE
     Dosage: 10 MG CAPSULE
     Dates: start: 20150122
  8. RESTASIS [Concomitant]
     Active Substance: CYCLOSPORINE
     Dosage: EMU 0.05%
     Dates: start: 20150122
  9. METOCLOPRAM [Concomitant]
     Active Substance: METOCLOPRAMIDE
     Dosage: 10 MG TABLET
     Dates: start: 20150122
  10. NIFEDIPINE. [Concomitant]
     Active Substance: NIFEDIPINE
     Dosage: 10 MG CAPSULE
     Dates: start: 20150122
  11. LACTULOSE. [Concomitant]
     Active Substance: LACTULOSE
     Dosage: SOL 10MG/15
     Dates: start: 20150122
  12. HYDRALAZINE [Concomitant]
     Active Substance: HYDRALAZINE HYDROCHLORIDE
     Dosage: 100 MG TABLET
     Dates: start: 20150122
  13. METOPROLOL. [Concomitant]
     Active Substance: METOPROLOL
     Dosage: 100 MG ER TABLET
  14. RANITIDINE. [Concomitant]
     Active Substance: RANITIDINE
     Dosage: 75 MG TABLET
     Dates: start: 20150122
  15. GLIPIZIDE. [Concomitant]
     Active Substance: GLIPIZIDE
     Dosage: 10 MG TABLET
     Dates: start: 20150122
  16. ALLOPURINOL. [Concomitant]
     Active Substance: ALLOPURINOL
     Dosage: 100  MG TABLET
     Dates: start: 20150122
  17. REPOSITORY CORTICOTROPIN INJECTION [Suspect]
     Active Substance: CORTICOTROPIN
     Indication: PROTEINURIA
     Dosage: 80 UNITS, Q 72 HRS
     Route: 058
     Dates: start: 20150127
  18. SODIUM BICARBONATE. [Concomitant]
     Active Substance: SODIUM BICARBONATE
     Dosage: INJ 7.5%
     Dates: start: 20150122
  19. TRADJENTA [Concomitant]
     Active Substance: LINAGLIPTIN
     Dosage: 5 MG TABLET
     Dates: start: 20150122
  20. LEVOTHYROXIN [Concomitant]
     Active Substance: LEVOTHYROXINE
     Dosage: 100 MCG TABLET
     Dates: start: 20150122
  21. INSULIN [Concomitant]
     Active Substance: INSULIN NOS
     Dosage: MIS 0.5/30G

REACTIONS (3)
  - Lacrimation increased [Unknown]
  - Fatigue [Not Recovered/Not Resolved]
  - Blood glucose increased [Not Recovered/Not Resolved]

NARRATIVE: CASE EVENT DATE: 20150127
